FAERS Safety Report 19388040 (Version 2)
Quarter: 2022Q1

REPORT INFORMATION
  Report Type: Spontaneous
  Country: FR (occurrence: FR)
  Receive Date: 20210608
  Receipt Date: 20220318
  Transmission Date: 20220423
  Serious: Yes (Hospitalization, Disabling)
  Sender: FDA-Public Use
  Company Number: None

PATIENT
  Age: 34 Year
  Sex: Female
  Weight: 80 kg

DRUGS (16)
  1. QUETIAPINE [Suspect]
     Active Substance: QUETIAPINE
     Indication: Bipolar disorder
     Dosage: 600 MG
     Route: 048
     Dates: start: 20210219
  2. PANTOPRAZOLE [Suspect]
     Active Substance: PANTOPRAZOLE
     Indication: Product used for unknown indication
     Dosage: 80 MG
     Route: 048
     Dates: start: 20210211
  3. TRAMADOL HYDROCHLORIDE [Suspect]
     Active Substance: TRAMADOL HYDROCHLORIDE
     Indication: Product used for unknown indication
     Dosage: 200 MG
     Route: 048
     Dates: start: 20210324
  4. CYAMEMAZINE [Suspect]
     Active Substance: CYAMEMAZINE
     Indication: Bipolar disorder
     Dosage: 175 MG
     Route: 048
     Dates: start: 20210401
  5. TRIMEPRAZINE [Suspect]
     Active Substance: TRIMEPRAZINE
     Indication: Bipolar disorder
     Dosage: IN DROPS, 20 MG
     Route: 048
     Dates: start: 20210324
  6. FERROUS FUMARATE [Suspect]
     Active Substance: FERROUS FUMARATE
     Indication: Product used for unknown indication
     Dosage: 3 DF
     Route: 048
     Dates: start: 20210212
  7. CYANOCOBALAMIN [Concomitant]
     Active Substance: CYANOCOBALAMIN
  8. PROPRANOLOL HYDROCHLORIDE [Concomitant]
     Active Substance: PROPRANOLOL HYDROCHLORIDE
     Dosage: SCORED TABLET
  9. ACETAMINOPHEN [Concomitant]
     Active Substance: ACETAMINOPHEN
  10. NICOPATCH [Concomitant]
     Active Substance: NICOTINE
  11. OXAZEPAM [Concomitant]
     Active Substance: OXAZEPAM
  12. CETIRIZINE DICHLORHYDRATE [Concomitant]
  13. FOLIC ACID [Concomitant]
     Active Substance: FOLIC ACID
  14. TERALITHE [Concomitant]
     Active Substance: LITHIUM CARBONATE
     Indication: Bipolar disorder
     Dosage: SCORED TABLET, 1000 MG
     Route: 048
     Dates: start: 20210324
  15. NICOTINELL [Concomitant]
     Active Substance: NICOTINE
     Dosage: TO SUCK
  16. CHOLECALCIFEROL [Concomitant]
     Active Substance: CHOLECALCIFEROL

REACTIONS (1)
  - Megacolon [Recovered/Resolved with Sequelae]

NARRATIVE: CASE EVENT DATE: 20210330
